FAERS Safety Report 23553769 (Version 1)
Quarter: 2024Q1

REPORT INFORMATION
  Report Type: Spontaneous
  Country: US (occurrence: None)
  Receive Date: 20240221
  Receipt Date: 20240221
  Transmission Date: 20240410
  Serious: Yes (Life-Threatening)
  Sender: FDA-Public Use
  Company Number: None

PATIENT
  Age: 69 Year
  Sex: Female
  Weight: 45.36 kg

DRUGS (1)
  1. TRIAZOLAM [Suspect]
     Active Substance: TRIAZOLAM
     Indication: Tooth disorder
     Dosage: OTHER FREQUENCY : 30 MIN PRIOR TO DE;?
     Route: 048
     Dates: start: 20220614, end: 20231012

REACTIONS (4)
  - Loss of consciousness [None]
  - Somnambulism [None]
  - Product substitution issue [None]
  - Product complaint [None]

NARRATIVE: CASE EVENT DATE: 20231012
